FAERS Safety Report 8051544-5 (Version None)
Quarter: 2012Q1

REPORT INFORMATION
  Report Type: 
  Country: None (occurrence: None)
  Receive Date: 20120117
  Receipt Date: 20120112
  Transmission Date: 20120608
  Serious: Yes (Other)
  Sender: FDA-Public Use
  Company Number: US-ASTRAZENECA-2012SE02416

PATIENT
  Sex: Male

DRUGS (2)
  1. NEXIUM [Concomitant]
  2. OMEPRAZOLE [Suspect]
     Route: 048

REACTIONS (2)
  - PNEUMONIA ASPIRATION [None]
  - GASTROOESOPHAGEAL REFLUX DISEASE [None]
